FAERS Safety Report 5848138-6 (Version None)
Quarter: 2008Q3

REPORT INFORMATION
  Report Type: 
  Country: None (occurrence: None)
  Receive Date: 20080818
  Receipt Date: 20080808
  Transmission Date: 20090109
  Serious: Yes (Hospitalization)
  Sender: FDA-Public Use
  Company Number: A0702240A

PATIENT
  Age: 62 Year
  Sex: Female

DRUGS (9)
  1. AVANDIA [Suspect]
     Dosage: 8MG UNKNOWN
     Dates: start: 20020101, end: 20050901
  2. ASPIRIN [Concomitant]
     Dosage: 325MG PER DAY
     Route: 048
  3. METOPROLOL TARTRATE [Concomitant]
     Route: 048
  4. ZETIA [Concomitant]
     Route: 048
  5. GLYBURIDE [Concomitant]
     Route: 048
  6. FOSAMAX [Concomitant]
     Dosage: 70MG WEEKLY
  7. CALCITRIOL [Concomitant]
     Dosage: .25MG PER DAY
     Route: 048
  8. FOLIC ACID [Concomitant]
     Route: 048
  9. COZAAR [Concomitant]
     Route: 048

REACTIONS (12)
  - ANAEMIA [None]
  - BLOOD GLUCOSE INCREASED [None]
  - CONDITION AGGRAVATED [None]
  - CORONARY ARTERY DISEASE [None]
  - DEPRESSION [None]
  - EJECTION FRACTION DECREASED [None]
  - HEART INJURY [None]
  - HYPERPARATHYROIDISM [None]
  - ISCHAEMIC CARDIOMYOPATHY [None]
  - MITRAL VALVE INCOMPETENCE [None]
  - MYOCARDIAL INFARCTION [None]
  - VENTRICULAR DYSFUNCTION [None]
